FAERS Safety Report 4693850-8 (Version None)
Quarter: 2005Q2

REPORT INFORMATION
  Report Type: 
  Country: None (occurrence: None)
  Receive Date: 20050615
  Receipt Date: 20050606
  Transmission Date: 20051028
  Serious: Yes (Other)
  Sender: FDA-Public Use
  Company Number: S05-USA-02386-01

PATIENT
  Age: 49 Year
  Sex: Female
  Weight: 119.296 kg

DRUGS (5)
  1. LEXAPRO [Suspect]
     Indication: DEPRESSION
     Dosage: 15 MG QD PO
     Route: 048
     Dates: start: 20041101, end: 20050501
  2. LEXAPRO [Suspect]
     Indication: DEPRESSION
     Dosage: 10 MG QD PO
     Route: 048
     Dates: start: 20031101, end: 20041101
  3. LEXAPRO [Suspect]
     Indication: DEPRESSION
     Dosage: 10 MG QD PO
     Route: 048
     Dates: start: 20050501
  4. ASPIRIN [Concomitant]
  5. CALCIUM-D [Concomitant]

REACTIONS (2)
  - EYE HAEMORRHAGE [None]
  - HYPERTENSION [None]
